FAERS Safety Report 9200805 (Version 2)
Quarter: 2013Q2

REPORT INFORMATION
  Report Type: Spontaneous
  Country: US (occurrence: US)
  Receive Date: 20130401
  Receipt Date: 20130607
  Transmission Date: 20140414
  Serious: Yes (Other)
  Sender: FDA-Public Use
  Company Number: US-TEVA-394987USA

PATIENT
  Sex: Female

DRUGS (1)
  1. PARAGARD 380A [Suspect]
     Indication: CONTRACEPTION
     Route: 015
     Dates: start: 20070918, end: 20080103

REACTIONS (9)
  - Soft tissue necrosis [Unknown]
  - Device dislocation [Recovered/Resolved]
  - Swelling [Unknown]
  - Scar [Unknown]
  - Abdominal pain [Not Recovered/Not Resolved]
  - Metrorrhagia [Unknown]
  - Menorrhagia [Unknown]
  - Pain [Unknown]
  - Mobility decreased [Unknown]
